FAERS Safety Report 5039098-9 (Version None)
Quarter: 2006Q2

REPORT INFORMATION
  Report Type: 
  Country: None (occurrence: None)
  Receive Date: 20060629
  Receipt Date: 20060328
  Transmission Date: 20061013
  Serious: Yes (Death, Other)
  Sender: FDA-Public Use
  Company Number: JP-MERCK-0603USA04699

PATIENT
  Age: 60 Year
  Sex: Male

DRUGS (6)
  1. STROMECTOL [Suspect]
     Indication: PROPHYLAXIS
     Route: 048
     Dates: start: 20041221, end: 20041221
  2. STROMECTOL [Suspect]
     Route: 048
     Dates: start: 20050131, end: 20050131
  3. STROMECTOL [Suspect]
     Route: 048
     Dates: start: 20050225, end: 20050225
  4. STROMECTOL [Suspect]
     Route: 048
     Dates: start: 20050303, end: 20050303
  5. STROMECTOL [Suspect]
     Route: 048
     Dates: start: 20050521, end: 20050521
  6. STROMECTOL [Suspect]
     Route: 048
     Dates: start: 20050528, end: 20050528

REACTIONS (5)
  - ALANINE AMINOTRANSFERASE INCREASED [None]
  - ASPARTATE AMINOTRANSFERASE INCREASED [None]
  - CHRONIC OBSTRUCTIVE PULMONARY DISEASE [None]
  - HEPATIC FUNCTION ABNORMAL [None]
  - INAPPROPRIATE SCHEDULE OF DRUG ADMINISTRATION [None]
